APPROVED DRUG PRODUCT: RANITIDINE HYDROCHLORIDE
Active Ingredient: RANITIDINE HYDROCHLORIDE
Strength: EQ 15MG BASE/ML
Dosage Form/Route: SYRUP;ORAL
Application: A091091 | Product #001
Applicant: NOSTRUM LABORATORIES INC
Approved: Sep 20, 2011 | RLD: No | RS: No | Type: DISCN